FAERS Safety Report 9858178 (Version 2)
Quarter: 2014Q1

REPORT INFORMATION
  Report Type: Spontaneous
  Country: CH (occurrence: CH)
  Receive Date: 20140131
  Receipt Date: 20140131
  Transmission Date: 20141002
  Serious: Yes (Other)
  Sender: FDA-Public Use
  Company Number: CH-BAYER-2013-147846

PATIENT
  Age: 45 Year
  Sex: Female
  Weight: 93 kg

DRUGS (1)
  1. MIRENA [Suspect]
     Indication: CONTRACEPTION
     Dosage: 20 MCG/24HR, CONT
     Route: 015
     Dates: start: 20130819, end: 20131128

REACTIONS (2)
  - Device dislocation [Recovered/Resolved]
  - Pain [Recovered/Resolved]
